FAERS Safety Report 4784961-7 (Version None)
Quarter: 2005Q3

REPORT INFORMATION
  Report Type: 
  Country: None (occurrence: None)
  Receive Date: 20050930
  Receipt Date: 20040806
  Transmission Date: 20060218
  Serious: Yes (Death, Other)
  Sender: FDA-Public Use
  Company Number: PHBS2004JP10482

PATIENT
  Age: 47 Year
  Sex: Female

DRUGS (4)
  1. SANDIMMUNE [Suspect]
     Indication: BONE MARROW TRANSPLANT
     Dosage: 75 MG/D
     Route: 042
     Dates: start: 20040624, end: 20040716
  2. PREDNISOLONE [Concomitant]
  3. BUSULFAN [Concomitant]
  4. CYCLOPHOSPHAMIDE [Concomitant]

REACTIONS (14)
  - BONE MARROW DISORDER [None]
  - CYSTITIS HAEMORRHAGIC [None]
  - CYTOMEGALOVIRUS INFECTION [None]
  - GASTRODUODENAL ULCER [None]
  - INTERSTITIAL LUNG DISEASE [None]
  - MELAENA [None]
  - MICROANGIOPATHIC HAEMOLYTIC ANAEMIA [None]
  - NEPHROPATHY TOXIC [None]
  - PANCYTOPENIA [None]
  - RASH [None]
  - RASH PAPULAR [None]
  - RESPIRATORY FAILURE [None]
  - STEVENS-JOHNSON SYNDROME [None]
  - THROMBOTIC MICROANGIOPATHY [None]
